FAERS Safety Report 8889898 (Version 3)
Quarter: 2012Q4

REPORT INFORMATION
  Report Type: 
  Country: US (occurrence: US)
  Receive Date: 20121107
  Receipt Date: 20121213
  Transmission Date: 20130627
  Serious: No
  Sender: FDA-Public Use
  Company Number: US-PFIZER INC-2012277791

PATIENT
  Sex: Female

DRUGS (2)
  1. LYRICA [Suspect]
     Indication: FIBROMYALGIA
     Dosage: UNK
  2. LYRICA [Suspect]
     Indication: CANCER
     Dosage: UNK

REACTIONS (4)
  - Herpes zoster [Unknown]
  - Breast disorder [Unknown]
  - Pain [Unknown]
  - Feeling abnormal [Unknown]
